FAERS Safety Report 9842111 (Version 1)
Quarter: 2014Q1

REPORT INFORMATION
  Report Type: Spontaneous
  Country: US (occurrence: US)
  Receive Date: 20140124
  Receipt Date: 20140124
  Transmission Date: 20141002
  Serious: No
  Sender: FDA-Public Use
  Company Number: US-MYLANLABS-2013S1027631

PATIENT
  Sex: Male

DRUGS (1)
  1. ALFUZOSIN HYDROCHLORIDE EXTENDED-RELEASE TABLETS [Suspect]
     Route: 048

REACTIONS (2)
  - Choking [Recovered/Resolved]
  - Dysphagia [Recovered/Resolved]
